FAERS Safety Report 7714268-7 (Version None)
Quarter: 2011Q3

REPORT INFORMATION
  Report Type: 
  Country: None (occurrence: None)
  Receive Date: 20110829
  Receipt Date: 20110818
  Transmission Date: 20111222
  Serious: No
  Sender: FDA-Public Use
  Company Number: US-BIOGENIDEC-2011BI031922

PATIENT
  Sex: Female

DRUGS (1)
  1. TYSABRI [Suspect]
     Indication: MULTIPLE SCLEROSIS
     Route: 042
     Dates: start: 20080910, end: 20110521

REACTIONS (21)
  - DIPLOPIA [None]
  - TRIGEMINAL NEURALGIA [None]
  - INTERVERTEBRAL DISC PROTRUSION [None]
  - GINGIVAL RECESSION [None]
  - MULTIPLE SCLEROSIS RELAPSE [None]
  - PRURITUS [None]
  - NEURALGIA [None]
  - INFLUENZA LIKE ILLNESS [None]
  - ARTHRITIS [None]
  - GAIT DISTURBANCE [None]
  - SOMNOLENCE [None]
  - GLOSSODYNIA [None]
  - OESOPHAGEAL SPASM [None]
  - APHASIA [None]
  - FATIGUE [None]
  - PARAESTHESIA [None]
  - SCOTOMA [None]
  - MUSCULAR WEAKNESS [None]
  - CHOLELITHIASIS [None]
  - APHAGIA [None]
  - EXOSTOSIS [None]
